FAERS Safety Report 22206398 (Version 2)
Quarter: 2023Q2

REPORT INFORMATION
  Report Type: Spontaneous
  Country: JP (occurrence: JP)
  Receive Date: 20230413
  Receipt Date: 20230510
  Transmission Date: 20230721
  Serious: Yes (Death, Other)
  Sender: FDA-Public Use
  Company Number: JP-MYLANLABS-2023M1036013

PATIENT
  Age: 69 Year
  Sex: Female
  Weight: 35 kg

DRUGS (10)
  1. CARBOPLATIN [Suspect]
     Active Substance: CARBOPLATIN
     Indication: Uterine cancer
     Dosage: 300 MILLIGRAM
     Route: 042
     Dates: start: 20230118, end: 20230118
  2. PACLITAXEL [Suspect]
     Active Substance: PACLITAXEL
     Indication: Uterine cancer
     Dosage: 190 MILLIGRAM
     Route: 042
     Dates: start: 20230118, end: 20230118
  3. GRANISETRON [Concomitant]
     Active Substance: GRANISETRON
     Indication: Uterine cancer
     Dosage: 3 MILLIGRAM, QD
     Route: 042
     Dates: start: 20230118, end: 20230118
  4. DECADRON [Concomitant]
     Active Substance: DEXAMETHASONE
     Indication: Uterine cancer
     Dosage: 9.9 MILLIGRAM, QD
     Route: 042
     Dates: start: 20230118, end: 20230118
  5. FAMOTIDINE [Concomitant]
     Active Substance: FAMOTIDINE
     Indication: Uterine cancer
     Dosage: 20 MILLIGRAM, QD
     Route: 042
     Dates: start: 20230118, end: 20230118
  6. LOXOPROFEN [Concomitant]
     Active Substance: LOXOPROFEN
     Indication: Pain
     Dosage: 180 MILLIGRAM/DAY
     Route: 065
     Dates: start: 20230108
  7. GENTAMICIN SULFATE [Concomitant]
     Active Substance: GENTAMICIN SULFATE
     Indication: Infection
     Dosage: UNK
     Route: 062
     Dates: start: 20230128
  8. GENTAMICIN SULFATE [Concomitant]
     Active Substance: GENTAMICIN SULFATE
     Indication: Rash
  9. CEFCAPENE PIVOXIL HYDROCHLORIDE HYDRATE [Concomitant]
     Active Substance: CEFCAPENE PIVOXIL HYDROCHLORIDE HYDRATE
     Indication: Cystitis
     Dosage: UNK
     Route: 048
     Dates: start: 20230201
  10. CALCIUM CHLORIDE\POTASSIUM CHLORIDE\SODIUM ACETATE\SODIUM CHLORIDE [Concomitant]
     Active Substance: CALCIUM CHLORIDE\POTASSIUM CHLORIDE\SODIUM ACETATE\SODIUM CHLORIDE
     Indication: Product used for unknown indication
     Dosage: UNK
     Route: 042
     Dates: start: 20230201

REACTIONS (3)
  - Intestinal perforation [Fatal]
  - Multiple organ dysfunction syndrome [Fatal]
  - Septic shock [Fatal]

NARRATIVE: CASE EVENT DATE: 20230202
